FAERS Safety Report 8341426-3 (Version None)
Quarter: 2012Q2

REPORT INFORMATION
  Report Type: 
  Country: None (occurrence: None)
  Receive Date: 20120507
  Receipt Date: 20120426
  Transmission Date: 20120825
  Serious: Yes (Hospitalization, Disabling)
  Sender: FDA-Public Use
  Company Number: US-MERCK-1112USA00798

PATIENT
  Age: 65 Year
  Sex: Female

DRUGS (9)
  1. ALENDRONATE SODIUM [Suspect]
     Indication: OSTEOPOROSIS PROPHYLAXIS
     Route: 048
     Dates: start: 20080201, end: 20080101
  2. FOSAMAX [Suspect]
     Route: 048
     Dates: start: 20010501, end: 20080701
  3. FOSAMAX [Suspect]
     Route: 048
     Dates: start: 20010501, end: 20080701
  4. FOSAMAX [Suspect]
     Indication: OSTEOPOROSIS PROPHYLAXIS
     Route: 048
     Dates: start: 20080201, end: 20080101
  5. FOSAMAX [Suspect]
     Indication: OSTEOPENIA
     Route: 048
     Dates: start: 19980101, end: 20010401
  6. FOSAMAX [Suspect]
     Route: 048
     Dates: start: 20080201, end: 20080101
  7. FOSAMAX [Suspect]
     Indication: OSTEOPOROSIS
     Route: 048
     Dates: start: 19980101, end: 20010401
  8. ALENDRONATE SODIUM [Suspect]
     Indication: OSTEOPOROSIS
     Route: 048
     Dates: start: 20080201, end: 20080101
  9. ESOMEPRAZOLE [Concomitant]
     Route: 065
     Dates: start: 20070101, end: 20090101

REACTIONS (12)
  - DERMATOMYOSITIS [None]
  - FEMUR FRACTURE [None]
  - FALL [None]
  - ARRHYTHMIA [None]
  - PALPITATIONS [None]
  - ADVERSE DRUG REACTION [None]
  - ESSENTIAL HYPERTENSION [None]
  - LOW TURNOVER OSTEOPATHY [None]
  - ANAEMIA [None]
  - GASTROOESOPHAGEAL REFLUX DISEASE [None]
  - HAEMORRHAGIC ANAEMIA [None]
  - BURSITIS [None]
